FAERS Safety Report 19172024 (Version 5)
Quarter: 2021Q4

REPORT INFORMATION
  Report Type: Report from Study
  Country: US (occurrence: US)
  Receive Date: 20210423
  Receipt Date: 20211112
  Transmission Date: 20220304
  Serious: Yes (Other)
  Sender: FDA-Public Use
  Company Number: NVSC2021US088595

PATIENT
  Sex: Female

DRUGS (3)
  1. KESIMPTA [Suspect]
     Active Substance: OFATUMUMAB
     Indication: Relapsing-remitting multiple sclerosis
     Dosage: 20 MG/KG (BENEATH THE SKIN USUALLY VIA INJECTION)
     Route: 058
     Dates: start: 20210324
  2. KESIMPTA [Suspect]
     Active Substance: OFATUMUMAB
     Indication: Clinically isolated syndrome
  3. KESIMPTA [Suspect]
     Active Substance: OFATUMUMAB
     Indication: Secondary progressive multiple sclerosis

REACTIONS (9)
  - Multiple sclerosis relapse [Unknown]
  - Carpal tunnel syndrome [Unknown]
  - Gait disturbance [Unknown]
  - Memory impairment [Unknown]
  - Injection site haemorrhage [Unknown]
  - Fatigue [Unknown]
  - Pain [Unknown]
  - Upper respiratory tract infection [Unknown]
  - Nasopharyngitis [Unknown]
